FAERS Safety Report 10065030 (Version 1)
Quarter: 2014Q2

REPORT INFORMATION
  Report Type: Report from Study
  Country: US (occurrence: US)
  Receive Date: 20140408
  Receipt Date: 20140408
  Transmission Date: 20141212
  Serious: Yes (Other)
  Sender: FDA-Public Use
  Company Number: US-BAYER-2014-049645

PATIENT
  Age: 71 Year
  Sex: Female

DRUGS (3)
  1. ASPIRIN [Suspect]
     Indication: ANTIPLATELET THERAPY
  2. CLOPIDOGREL [Suspect]
     Indication: ANTIPLATELET THERAPY
  3. WARFARIN [Suspect]
     Indication: ANTICOAGULANT THERAPY

REACTIONS (4)
  - Drug interaction [None]
  - Soft tissue haemorrhage [Recovered/Resolved]
  - Oedema peripheral [Recovered/Resolved]
  - Haemorrhagic anaemia [Recovered/Resolved]
